FAERS Safety Report 14631531 (Version 1)
Quarter: 2018Q1

REPORT INFORMATION
  Report Type: Spontaneous
  Country: DE (occurrence: DE)
  Receive Date: 20180313
  Receipt Date: 20180313
  Transmission Date: 20180509
  Serious: Yes (Hospitalization, Other)
  Sender: FDA-Public Use
  Company Number: DE-WEST-WARD PHARMACEUTICALS CORP.-DE-H14001-18-01738

PATIENT
  Age: 30 Year
  Sex: Female
  Weight: 85 kg

DRUGS (3)
  1. PACLITAXEL. [Suspect]
     Active Substance: PACLITAXEL
     Indication: BREAST CANCER
     Route: 042
     Dates: start: 20171121, end: 20180213
  2. DENOSUMAB [Suspect]
     Active Substance: DENOSUMAB
     Indication: BREAST CANCER
     Route: 058
     Dates: start: 20171121
  3. CARBOPLATIN. [Suspect]
     Active Substance: CARBOPLATIN
     Indication: BREAST CANCER
     Route: 042
     Dates: start: 20171121

REACTIONS (2)
  - Off label use [Unknown]
  - Administration site extravasation [Recovered/Resolved]

NARRATIVE: CASE EVENT DATE: 20180213
